FAERS Safety Report 9107383 (Version 2)
Quarter: 2013Q1

REPORT INFORMATION
  Report Type: Report from Study
  Country: CA (occurrence: CA)
  Receive Date: 20130221
  Receipt Date: 20130228
  Transmission Date: 20140127
  Serious: Yes (Other)
  Sender: FDA-Public Use
  Company Number: CA-JNJFOC-20130104050

PATIENT
  Sex: Male
  Weight: 99.79 kg

DRUGS (3)
  1. REMICADE [Suspect]
     Indication: PSORIATIC ARTHROPATHY
     Route: 042
  2. REMICADE [Suspect]
     Indication: PSORIATIC ARTHROPATHY
     Route: 042
     Dates: start: 20080521
  3. OTRIVIN [Concomitant]
     Route: 045

REACTIONS (4)
  - Sinusitis [Unknown]
  - Drug effect decreased [Unknown]
  - Psoriatic arthropathy [Unknown]
  - Decreased immune responsiveness [Unknown]
